FAERS Safety Report 23090768 (Version 1)
Quarter: 2023Q4

REPORT INFORMATION
  Report Type: Spontaneous
  Country: US (occurrence: None)
  Receive Date: 20231018
  Receipt Date: 20231018
  Transmission Date: 20240109
  Serious: No
  Sender: FDA-Public Use
  Company Number: None

PATIENT
  Age: 70 Year
  Sex: Female

DRUGS (1)
  1. OPSUMIT [Suspect]
     Active Substance: MACITENTAN
     Indication: Pulmonary hypertension
     Dosage: FREQUENCY : DAILY;?
     Route: 048
     Dates: start: 20170105

REACTIONS (6)
  - Haemoptysis [None]
  - Therapy interrupted [None]
  - Parainfluenzae virus infection [None]
  - Culture positive [None]
  - Escherichia infection [None]
  - Cough [None]

NARRATIVE: CASE EVENT DATE: 20230925
